FAERS Safety Report 6411520-2 (Version None)
Quarter: 2009Q4

REPORT INFORMATION
  Report Type: 
  Country: None (occurrence: None)
  Receive Date: 20091023
  Receipt Date: 20091013
  Transmission Date: 20100525
  Serious: Yes (Hospitalization)
  Sender: FDA-Public Use
  Company Number: US-JNJFOC-20091004660

PATIENT
  Age: 56 Year
  Sex: Male

DRUGS (3)
  1. PREZISTA [Suspect]
     Indication: HIV INFECTION
     Route: 048
  2. RITONAVIR [Suspect]
     Indication: HIV INFECTION
  3. EPIVIR [Concomitant]
     Indication: HIV INFECTION

REACTIONS (1)
  - CREATININE RENAL CLEARANCE DECREASED [None]
